FAERS Safety Report 4358678-7 (Version None)
Quarter: 2004Q2

REPORT INFORMATION
  Report Type: 
  Country: None (occurrence: None)
  Receive Date: 20040511
  Receipt Date: 20040428
  Transmission Date: 20050107
  Serious: Yes (Hospitalization)
  Sender: FDA-Public Use
  Company Number: 03P-163-0237327-00

PATIENT
  Age: 70 Year
  Sex: Female
  Weight: 69 kg

DRUGS (10)
  1. HUMIRA [Suspect]
     Indication: RHEUMATOID ARTHRITIS
     Dosage: 1 IN 2 WK, SUBCUTANEOUS
     Route: 058
     Dates: start: 20010606, end: 20031015
  2. METHOTREXATE [Concomitant]
  3. NAPROXEN [Concomitant]
  4. FOLIC ACID [Concomitant]
  5. CALCIUM CARBONATE [Concomitant]
  6. THYROID TAB [Concomitant]
  7. ESOMEPRAZOLE [Concomitant]
  8. PRINZIDE [Concomitant]
  9. CONJUGATED ESTROGEN [Concomitant]
  10. ZESTORETIC [Concomitant]

REACTIONS (25)
  - ACUTE MYOCARDIAL INFARCTION [None]
  - AORTIC STENOSIS [None]
  - BLOOD PRESSURE SYSTOLIC INCREASED [None]
  - CANDIDIASIS [None]
  - CHOLELITHIASIS [None]
  - DRUG INEFFECTIVE [None]
  - DYSPHAGIA [None]
  - EARLY SATIETY [None]
  - EJECTION FRACTION DECREASED [None]
  - ESCHERICHIA INFECTION [None]
  - ESCHERICHIA URINARY TRACT INFECTION [None]
  - FLUID OVERLOAD [None]
  - GASTROINTESTINAL STROMAL TUMOUR [None]
  - METASTASES TO KIDNEY [None]
  - OXYGEN SATURATION DECREASED [None]
  - POST PROCEDURAL COMPLICATION [None]
  - POSTOPERATIVE INFECTION [None]
  - RENAL CELL CARCINOMA STAGE UNSPECIFIED [None]
  - RENAL VESSEL DISORDER [None]
  - RESPIRATORY RATE INCREASED [None]
  - SUPRAVENTRICULAR EXTRASYSTOLES [None]
  - TUMOUR NECROSIS [None]
  - VENOUS STENOSIS [None]
  - VENTRICULAR EXTRASYSTOLES [None]
  - WEIGHT DECREASED [None]
